FAERS Safety Report 24031678 (Version 1)
Quarter: 2024Q2

REPORT INFORMATION
  Report Type: Spontaneous
  Country: US (occurrence: US)
  Receive Date: 20240629
  Receipt Date: 20240629
  Transmission Date: 20240715
  Serious: No
  Sender: FDA-Public Use
  Company Number: US-ABBVIE-5819827

PATIENT
  Age: 59 Year
  Sex: Male

DRUGS (1)
  1. UPADACITINIB [Suspect]
     Active Substance: UPADACITINIB
     Indication: Dermatitis allergic
     Dosage: 15 MILLIGRAM, FORM STRENGTH: 15 MG
     Route: 048
     Dates: start: 2023

REACTIONS (3)
  - Product residue present [Recovered/Resolved]
  - Off label use [Unknown]
  - Blood cholesterol increased [Not Recovered/Not Resolved]

NARRATIVE: CASE EVENT DATE: 20240501
